FAERS Safety Report 24750639 (Version 1)
Quarter: 2024Q4

REPORT INFORMATION
  Report Type: Spontaneous
  Country: US (occurrence: US)
  Receive Date: 20241218
  Receipt Date: 20241218
  Transmission Date: 20250114
  Serious: No
  Sender: AMGEN
  Company Number: US-AMGEN-USASP2024246862

PATIENT
  Sex: Female
  Weight: 81.633 kg

DRUGS (1)
  1. TEPEZZA [Suspect]
     Active Substance: TEPROTUMUMAB-TRBW
     Indication: Toxic goitre
     Dosage: 820 MILLIGRAM, Q3WK (500 MG SDV/INJ PWD)
     Route: 040

REACTIONS (1)
  - Blood glucose increased [Unknown]
